FAERS Safety Report 5956927-2 (Version None)
Quarter: 2008Q4

REPORT INFORMATION
  Report Type: 
  Country: None (occurrence: None)
  Receive Date: 20081118
  Receipt Date: 20081106
  Transmission Date: 20090506
  Serious: Yes (Other)
  Sender: FDA-Public Use
  Company Number: BE-SANOFI-SYNTHELABO-A01200814221

PATIENT
  Age: 52 Year
  Sex: Male

DRUGS (3)
  1. ZOCOR [Concomitant]
     Indication: DRUG USE FOR UNKNOWN INDICATION
     Dosage: UNK
     Route: 065
  2. PLAVIX [Suspect]
     Indication: CORONARY ARTERY STENOSIS
     Route: 048
     Dates: start: 20080301
  3. PLAVIX [Suspect]
     Indication: STENT PLACEMENT
     Route: 048
     Dates: start: 20080301

REACTIONS (1)
  - METASTATIC NEOPLASM [None]
